FAERS Safety Report 14931250 (Version 2)
Quarter: 2018Q3

REPORT INFORMATION
  Report Type: Report from Study
  Country: IN (occurrence: IN)
  Receive Date: 20180524
  Receipt Date: 20180704
  Transmission Date: 20181010
  Serious: Yes (Other)
  Sender: FDA-Public Use
  Company Number: IN-UCBSA-2018022377

PATIENT
  Age: 21 Year
  Sex: Male

DRUGS (4)
  1. BRIVARACETAM [Suspect]
     Active Substance: BRIVARACETAM
     Dosage: 100 MG, 2X/DAY (BID)
     Route: 048
     Dates: start: 2018
  2. BRIVARACETAM [Suspect]
     Active Substance: BRIVARACETAM
     Dosage: 50 MG, 2X/DAY (BID)
     Route: 048
     Dates: start: 201805, end: 201805
  3. BRIVARACETAM [Suspect]
     Active Substance: BRIVARACETAM
     Dosage: 50MG IN THE MORNING AND 100MG IN THE EVENING, 2X/DAY (BID)
     Route: 048
     Dates: start: 201805, end: 2018
  4. BRIVARACETAM [Suspect]
     Active Substance: BRIVARACETAM
     Indication: EPILEPSY
     Dosage: 50 MG, ONCE DAILY (QD)
     Route: 048
     Dates: start: 20180501, end: 201805

REACTIONS (9)
  - Alopecia [Not Recovered/Not Resolved]
  - Psychomotor hyperactivity [Not Recovered/Not Resolved]
  - Pollakiuria [Unknown]
  - Intentional product misuse [Unknown]
  - Drug ineffective [Unknown]
  - Aggression [Not Recovered/Not Resolved]
  - Tremor [Not Recovered/Not Resolved]
  - Somnolence [Not Recovered/Not Resolved]
  - Seizure [Not Recovered/Not Resolved]

NARRATIVE: CASE EVENT DATE: 2018
